FAERS Safety Report 20988504 (Version 2)
Quarter: 2022Q2

REPORT INFORMATION
  Report Type: Spontaneous
  Country: US (occurrence: US)
  Receive Date: 20220621
  Receipt Date: 20220622
  Transmission Date: 20220721
  Serious: Yes (Other)
  Sender: FDA-Public Use
  Company Number: US-PFIZER INC-202200845455

PATIENT
  Age: 69 Year
  Sex: Female
  Weight: 83.91 kg

DRUGS (4)
  1. ZOSYN [Suspect]
     Active Substance: PIPERACILLIN SODIUM\TAZOBACTAM SODIUM
     Dosage: 3.375 G (EVERY 8 HOURS)
     Dates: end: 20220613
  2. PIPERACILLIN SODIUM\TAZOBACTAM SODIUM [Suspect]
     Active Substance: PIPERACILLIN SODIUM\TAZOBACTAM SODIUM
     Indication: Liver abscess
     Dosage: 3.375 G(INFUSED OVER 30 MINUTES EVERY 8 HOURS)
     Route: 051
     Dates: start: 20220506
  3. BACILLUS COAGULANS [Concomitant]
     Active Substance: BACILLUS COAGULANS
     Indication: Central venous catheterisation
     Dosage: 1 DF, DAILY
  4. TRAZODONE [Concomitant]
     Active Substance: TRAZODONE HYDROCHLORIDE
     Indication: Somnolence
     Dosage: 100 MG(100MG TAKEN AT NIGHT   )

REACTIONS (7)
  - Drug-induced liver injury [Unknown]
  - Near death experience [Unknown]
  - Off label use [Unknown]
  - Pyrexia [Not Recovered/Not Resolved]
  - Diarrhoea [Not Recovered/Not Resolved]
  - Nausea [Unknown]
  - Hypertransaminasaemia [Unknown]

NARRATIVE: CASE EVENT DATE: 20220506
